FAERS Safety Report 9382719 (Version 2)
Quarter: 2013Q3

REPORT INFORMATION
  Report Type: Spontaneous
  Country: JP (occurrence: JP)
  Receive Date: 20130703
  Receipt Date: 20130724
  Transmission Date: 20140515
  Serious: Yes (Other)
  Sender: FDA-Public Use
  Company Number: JP-TEVA-416917USA

PATIENT
  Age: 70 Year
  Sex: 0

DRUGS (2)
  1. BENDAMUSTINE [Suspect]
     Dosage: UID/QD
     Route: 042
     Dates: start: 20130619, end: 20130620
  2. RITUXIMAB [Suspect]
     Dosage: UNKNOWN/D
     Route: 042
     Dates: start: 20130619, end: 20130619

REACTIONS (1)
  - Renal disorder [Recovering/Resolving]
